FAERS Safety Report 20866972 (Version 2)
Quarter: 2022Q2

REPORT INFORMATION
  Report Type: Spontaneous
  Country: HU (occurrence: HU)
  Receive Date: 20220524
  Receipt Date: 20220606
  Transmission Date: 20220721
  Serious: Yes (Death, Other)
  Sender: FDA-Public Use
  Company Number: HU-002147023-NVSC2022HU089807

PATIENT
  Age: 60 Year
  Sex: Male

DRUGS (12)
  1. ATORVASTATIN [Suspect]
     Active Substance: ATORVASTATIN
     Indication: Product used for unknown indication
     Dosage: 20 MILLIGRAM (20 MG)
     Route: 048
  2. ENTRESTO [Suspect]
     Active Substance: SACUBITRIL\VALSARTAN
     Indication: Product used for unknown indication
     Dosage: 2 DOSAGE FORM (2 X 24/26 MG)
     Route: 048
     Dates: start: 201907
  3. MYOQINON [Concomitant]
     Indication: Product used for unknown indication
     Dosage: 200 MILLIGRAM (200 MG)
     Route: 048
  4. POTASSIUM CHLORIDE [Concomitant]
     Active Substance: POTASSIUM CHLORIDE
     Indication: Product used for unknown indication
     Dosage: 3600 MILLIGRAM (3600 MG)
     Route: 048
  5. CLOPIDOGREL [Concomitant]
     Active Substance: CLOPIDOGREL BISULFATE
     Indication: Product used for unknown indication
     Dosage: 75 MILLIGRAM (75 MG)
     Route: 048
  6. DOBUTAMINE [Concomitant]
     Active Substance: DOBUTAMINE HYDROCHLORIDE
     Indication: Product used for unknown indication
     Dosage: 5 MILLIGRAM PER MILLILITRE
     Route: 042
  7. EZETIMIBE [Concomitant]
     Active Substance: EZETIMIBE
     Indication: Product used for unknown indication
     Dosage: 10 MILLIGRAM (10 MG)
     Route: 048
  8. ALLOPURINOL [Concomitant]
     Active Substance: ALLOPURINOL
     Indication: Product used for unknown indication
     Dosage: 100 MILLIGRAM (100 MG)
     Route: 048
  9. EPLERENONE [Concomitant]
     Active Substance: EPLERENONE
     Indication: Product used for unknown indication
     Dosage: 50 MILLIGRAM (50 MG)
     Route: 048
  10. AMIODARONE [Concomitant]
     Active Substance: AMIODARONE
     Indication: Product used for unknown indication
     Dosage: 200 MILLIGRAM (200 MG)
     Route: 048
  11. ENOXAPARIN [Concomitant]
     Active Substance: ENOXAPARIN
     Indication: Product used for unknown indication
     Dosage: 2 DOSAGE FORM (2X0.4 ML)
  12. FUROSEMIDE [Concomitant]
     Active Substance: FUROSEMIDE
     Indication: Product used for unknown indication
     Dosage: 4 MILLIGRAM PER MILLILITRE
     Route: 042

REACTIONS (4)
  - Multiple organ dysfunction syndrome [Fatal]
  - Ischaemic cardiomyopathy [Unknown]
  - Disease progression [Unknown]
  - Coronavirus infection [Unknown]

NARRATIVE: CASE EVENT DATE: 20201001
